FAERS Safety Report 8444321-4 (Version None)
Quarter: 2012Q2

REPORT INFORMATION
  Report Type: 
  Country: None (occurrence: None)
  Receive Date: 20120618
  Receipt Date: 20120608
  Transmission Date: 20120825
  Serious: Yes (Other)
  Sender: FDA-Public Use
  Company Number: US-ASTRAZENECA-2012SE25269

PATIENT
  Sex: Female
  Weight: 73.9 kg

DRUGS (2)
  1. FASLODEX [Suspect]
     Indication: BREAST CANCER
     Route: 030
     Dates: start: 20090331
  2. IXEMPRA KIT [Concomitant]
     Indication: BREAST CANCER
     Route: 042
     Dates: start: 20091209

REACTIONS (2)
  - SCAR [None]
  - INJECTION SITE HAEMATOMA [None]
